FAERS Safety Report 5056194-0 (Version None)
Quarter: 2006Q3

REPORT INFORMATION
  Report Type: 
  Country: None (occurrence: None)
  Receive Date: 20060720
  Receipt Date: 20060713
  Transmission Date: 20061208
  Serious: Yes (Other)
  Sender: FDA-Public Use
  Company Number: GR-AVENTIS-200617284GDDC

PATIENT
  Age: 56 Year
  Sex: Male

DRUGS (6)
  1. HYDROCORTISONE TAB [Suspect]
     Indication: ADDISON'S DISEASE
     Route: 030
  2. HYDROCORTISONE TAB [Suspect]
     Route: 030
  3. HYDROCORTISONE TAB [Suspect]
     Route: 048
  4. HYDROCORTISONE TAB [Suspect]
     Route: 048
  5. FLUDROCORTISONE [Suspect]
     Indication: ADDISON'S DISEASE
  6. MIRTAZAPINE [Concomitant]
     Indication: DEPRESSION

REACTIONS (2)
  - LOCKED-IN SYNDROME [None]
  - MANIA [None]
